FAERS Safety Report 24177547 (Version 1)
Quarter: 2024Q3

REPORT INFORMATION
  Report Type: Spontaneous
  Country: TW (occurrence: TW)
  Receive Date: 20240806
  Receipt Date: 20240806
  Transmission Date: 20241016
  Serious: Yes (Hospitalization)
  Sender: AMGEN
  Company Number: TW-PFIZER INC-PV202400100197

PATIENT
  Sex: Female

DRUGS (1)
  1. ENBREL [Suspect]
     Active Substance: BENZYL ALCOHOL\ETANERCEPT
     Indication: Ankylosing spondylitis
     Dosage: 25 MG, 2X/WEEK
     Route: 058
     Dates: start: 20230324, end: 20240725

REACTIONS (2)
  - Fracture [Not Recovered/Not Resolved]
  - Fall [Not Recovered/Not Resolved]
